FAERS Safety Report 8437054-1 (Version None)
Quarter: 2012Q2

REPORT INFORMATION
  Report Type: 
  Country: None (occurrence: None)
  Receive Date: 20120614
  Receipt Date: 20120605
  Transmission Date: 20120825
  Serious: Yes (Other)
  Sender: FDA-Public Use
  Company Number: LB-JNJFOC-20120604095

PATIENT
  Age: 27 Year
  Sex: Female
  Weight: 95 kg

DRUGS (5)
  1. RISPERDAL CONSTA [Suspect]
     Indication: SCHIZOPHRENIA
     Route: 030
  2. RISPERDAL CONSTA [Suspect]
     Route: 030
     Dates: start: 20101201
  3. PROZAC [Suspect]
     Indication: DEPRESSION
     Route: 048
  4. PROZAC [Suspect]
     Route: 048
     Dates: start: 20110101
  5. PROZAC [Suspect]
     Route: 048

REACTIONS (2)
  - METABOLIC SYNDROME [None]
  - WEIGHT INCREASED [None]
